FAERS Safety Report 22152508 (Version 1)
Quarter: 2023Q1

REPORT INFORMATION
  Report Type: Report from Study
  Country: US (occurrence: US)
  Receive Date: 20230329
  Receipt Date: 20230329
  Transmission Date: 20230417
  Serious: Yes (Hospitalization, Other)
  Sender: FDA-Public Use
  Company Number: US-GILEAD-2023-0621822

PATIENT
  Sex: Female

DRUGS (2)
  1. AMBRISENTAN [Suspect]
     Active Substance: AMBRISENTAN
     Indication: Pulmonary arterial hypertension
     Dosage: 5 MG, QD
     Route: 065
     Dates: start: 20230105
  2. SILDENAFIL [Concomitant]
     Active Substance: SILDENAFIL

REACTIONS (3)
  - Cardiac disorder [Unknown]
  - Dementia Alzheimer^s type [Unknown]
  - Oxygen saturation decreased [Unknown]
